FAERS Safety Report 25011541 (Version 1)
Quarter: 2025Q1

REPORT INFORMATION
  Report Type: Other
  Country: FR (occurrence: FR)
  Receive Date: 20250226
  Receipt Date: 20250226
  Transmission Date: 20250408
  Serious: Yes (Hospitalization)
  Sender: ZYDUS PHARM
  Company Number: None

PATIENT

DRUGS (3)
  1. ACETAMINOPHEN [Suspect]
     Active Substance: ACETAMINOPHEN
     Indication: Intentional overdose
     Route: 048
     Dates: start: 20250118, end: 20250118
  2. TRAMADOL [Suspect]
     Active Substance: TRAMADOL
     Indication: Intentional overdose
     Route: 048
     Dates: start: 20250118, end: 20250118
  3. OPIUM [Suspect]
     Active Substance: OPIUM
     Indication: Intentional overdose
     Route: 048
     Dates: start: 20250118, end: 20250118

REACTIONS (3)
  - Prothrombin time ratio decreased [Recovering/Resolving]
  - Coma [Recovered/Resolved]
  - Poisoning deliberate [Recovered/Resolved]

NARRATIVE: CASE EVENT DATE: 20250118
